FAERS Safety Report 4566985-8 (Version None)
Quarter: 2005Q1

REPORT INFORMATION
  Report Type: 
  Country: None (occurrence: None)
  Receive Date: 20050201
  Receipt Date: 20040212
  Transmission Date: 20050727
  Serious: Yes (Other)
  Sender: FDA-Public Use
  Company Number: US-BRISTOL-MYERS SQUIBB COMPANY-12510830

PATIENT
  Age: 44 Year
  Sex: Female

DRUGS (12)
  1. STADOL [Suspect]
     Indication: MIGRAINE
     Route: 045
     Dates: start: 19960229
  2. PHENERGAN [Concomitant]
  3. BUTALBITAL + CAFFEINE + ACETAMINOPHEN [Concomitant]
  4. AMITRIPTYLINE [Concomitant]
  5. NORTRIPTYLINE HCL [Concomitant]
  6. VERAPAMIL [Concomitant]
  7. ALPRAZOLAM [Concomitant]
  8. PROPOXYPHENE HCL+APAP+CAFFEINE [Concomitant]
  9. TRIAMTERENE AND HYDROCHLOROTHIAZIDE [Concomitant]
  10. METHOCARBAMOL [Concomitant]
  11. DIAZEPAM [Concomitant]
  12. CYCLOBENZAPRINE [Concomitant]

REACTIONS (2)
  - DEPENDENCE [None]
  - DRUG WITHDRAWAL SYNDROME [None]
